FAERS Safety Report 5306188-2 (Version None)
Quarter: 2007Q1

REPORT INFORMATION
  Report Type: 
  Country: None (occurrence: None)
  Receive Date: 20070201
  Receipt Date: 20061227
  Transmission Date: 20070707
  Serious: No
  Sender: FDA-Public Use
  Company Number: 2007PV027568

PATIENT
  Age: 64 Year
  Sex: Female
  Weight: 97.5234 kg

DRUGS (7)
  1. BYETTA [Suspect]
     Indication: DIABETES MELLITUS NON-INSULIN-DEPENDENT
     Dosage: SEE IMAGE
     Route: 058
     Dates: start: 20050101
  2. BYETTA [Suspect]
     Indication: INSULIN RESISTANCE
     Dosage: SEE IMAGE
     Route: 058
     Dates: start: 20050101
  3. GLUCOPHAGE [Concomitant]
  4. GLYBURIDE [Concomitant]
  5. OMEGA 3 [Concomitant]
  6. ALPHA LIPOIC ACID [Concomitant]
  7. . [Concomitant]

REACTIONS (8)
  - ANOREXIA [None]
  - DIABETIC RETINOPATHY [None]
  - DRUG EFFECT DECREASED [None]
  - DYSGEUSIA [None]
  - KERATOCONJUNCTIVITIS SICCA [None]
  - NAUSEA [None]
  - VOMITING [None]
  - WEIGHT DECREASED [None]
